FAERS Safety Report 8780421 (Version 1)
Quarter: 2012Q4

REPORT INFORMATION
  Report Type: Spontaneous
  Country: US (occurrence: None)
  Receive Date: 20120906
  Receipt Date: 20120906
  Transmission Date: 20130627
  Serious: Yes (Other)
  Sender: FDA-Public Use
  Company Number: None

PATIENT
  Age: 37 Year
  Sex: Female

DRUGS (1)
  1. TEVTROPIN [Suspect]
     Route: 058
     Dates: start: 20110502

REACTIONS (3)
  - Chest pain [None]
  - Hyperhidrosis [None]
  - Dizziness [None]
